FAERS Safety Report 9415247 (Version 1)
Quarter: 2013Q3

REPORT INFORMATION
  Report Type: Spontaneous
  Country: US (occurrence: US)
  Receive Date: 20130723
  Receipt Date: 20130723
  Transmission Date: 20140515
  Serious: No
  Sender: FDA-Public Use
  Company Number: US-009507513-1307USA004814

PATIENT
  Sex: 0

DRUGS (1)
  1. EPTIFIBATIDE [Suspect]
     Indication: ANTIPLATELET THERAPY
     Dosage: 15 MG
     Route: 042

REACTIONS (1)
  - Post procedural haematoma [Unknown]
